FAERS Safety Report 6589327-5 (Version None)
Quarter: 2010Q1

REPORT INFORMATION
  Report Type: 
  Country: None (occurrence: None)
  Receive Date: 20100218
  Receipt Date: 20100208
  Transmission Date: 20100710
  Serious: Yes (Other)
  Sender: FDA-Public Use
  Company Number: US-JNJFOC-20091106355

PATIENT
  Sex: Male
  Weight: 170.1 kg

DRUGS (8)
  1. INVEGA SUSTENNA [Suspect]
     Indication: SCHIZOPHRENIA
     Route: 030
     Dates: start: 20091104
  2. INVEGA SUSTENNA [Suspect]
     Route: 030
     Dates: start: 20091104
  3. INVEGA SUSTENNA [Suspect]
     Indication: MENTAL DISORDER
     Route: 030
     Dates: start: 20091104
  4. INVEGA SUSTENNA [Suspect]
     Route: 030
     Dates: start: 20091104
  5. METOPROLOL TARTRATE [Concomitant]
     Indication: HYPERTENSION
  6. LISINOPRIL [Concomitant]
     Indication: HYPERTENSION
  7. ASPIRIN [Concomitant]
     Indication: CEREBROVASCULAR ACCIDENT PROPHYLAXIS
  8. RISPERDAL [Concomitant]
     Indication: DRUG USE FOR UNKNOWN INDICATION

REACTIONS (2)
  - DEHYDRATION [None]
  - HYPOTENSION [None]
